FAERS Safety Report 25769500 (Version 5)
Quarter: 2025Q4

REPORT INFORMATION
  Report Type: Spontaneous
  Country: AU (occurrence: AU)
  Receive Date: 20250906
  Receipt Date: 20251216
  Transmission Date: 20260117
  Serious: Yes (Hospitalization, Other)
  Sender: ACCORD
  Company Number: AU-Accord-503111

PATIENT
  Age: 59 Year
  Sex: Male
  Weight: 76.5 kg

DRUGS (8)
  1. FLUOROURACIL [Suspect]
     Active Substance: FLUOROURACIL
     Indication: Adenocarcinoma pancreas
     Dosage: 2400 MILLIGRAM/SQ. METER, DAYS 1 AND 15 OF EACH 28-DAY CYCLE; INTRAVENOUS USE
     Route: 042
     Dates: start: 20250805, end: 20250819
  2. IRINOTECAN [Suspect]
     Active Substance: IRINOTECAN
     Indication: Adenocarcinoma pancreas
     Dosage: 180 MILLIGRAM/SQ. METER, DAYS 1 AND 15 OF EACH 28 DAY CYCLE; INTRAVENOUS USE
     Route: 042
     Dates: start: 20250805, end: 20250819
  3. OXALIPLATIN [Suspect]
     Active Substance: OXALIPLATIN
     Indication: Adenocarcinoma pancreas
     Dosage: 85 MG/M2; DAY 1 AND 15 OF EACH 28-DAY CYCLE, IV USE
     Route: 042
     Dates: start: 20250805, end: 20250819
  4. LEUCOVORIN [Suspect]
     Active Substance: LEUCOVORIN\LEUCOVORIN CALCIUM
     Indication: Adenocarcinoma pancreas
     Dosage: 50MG, DAYS 1 AND 15 OF EACH 28-DAY CYCLE; IV USE
     Route: 042
     Dates: start: 20250805, end: 20250819
  5. OXALIPLATIN [Suspect]
     Active Substance: OXALIPLATIN
     Indication: Adenocarcinoma pancreas
     Dosage: IV USE
     Route: 042
     Dates: start: 20250826, end: 20250909
  6. LEUCOVORIN [Suspect]
     Active Substance: LEUCOVORIN\LEUCOVORIN CALCIUM
     Indication: Adenocarcinoma pancreas
     Dosage: 50MG, DAYS 1 AND 15 OF EACH 28-DAY CYCLE; IV USE
     Route: 042
     Dates: start: 20250826, end: 20250826
  7. IRINOTECAN [Suspect]
     Active Substance: IRINOTECAN
     Indication: Adenocarcinoma pancreas
     Dosage: 180 MILLIGRAM/SQ. METER, DAYS 1 AND 15 OF EACH 28 DAY CYCLE; INTRAVENOUS USE
     Route: 042
     Dates: start: 20250826
  8. FLUOROURACIL [Suspect]
     Active Substance: FLUOROURACIL
     Indication: Adenocarcinoma pancreas
     Dosage: 2400 MILLIGRAM/SQ. METER, DAYS 1 AND 15 OF EACH 28-DAY CYCLE; INTRAVENOUS USE
     Route: 042
     Dates: start: 20250826

REACTIONS (2)
  - Syncope [Recovered/Resolved]
  - Febrile neutropenia [Recovered/Resolved]

NARRATIVE: CASE EVENT DATE: 20250809
